FAERS Safety Report 17041974 (Version 1)
Quarter: 2019Q4

REPORT INFORMATION
  Report Type: Spontaneous
  Country: US (occurrence: US)
  Receive Date: 20191118
  Receipt Date: 20191118
  Transmission Date: 20200122
  Serious: No
  Sender: FDA-Public Use
  Company Number: NVSC2019US037716

PATIENT
  Age: 52 Year
  Sex: Male

DRUGS (7)
  1. MIDAZOLAM [Suspect]
     Active Substance: MIDAZOLAM HYDROCHLORIDE
     Indication: ARTERIAL SPASM
  2. NITROGLYCERINE SANDOZ SPRAY 0,4 MG/DOSIS, SPRAY VOOR SUBLINGUAAL GEBRU [Suspect]
     Active Substance: NITROGLYCERIN
     Indication: SEDATION
  3. VERAPAMIL [Suspect]
     Active Substance: VERAPAMIL HYDROCHLORIDE
     Indication: ARTERIAL SPASM
     Dosage: UNK
     Route: 065
  4. MIDAZOLAM [Suspect]
     Active Substance: MIDAZOLAM HYDROCHLORIDE
     Indication: SEDATION
     Dosage: UNK
     Route: 065
  5. FENTANYL. [Suspect]
     Active Substance: FENTANYL
     Indication: SEDATION
     Dosage: UNK
     Route: 065
  6. FENTANYL. [Suspect]
     Active Substance: FENTANYL
     Indication: ARTERIAL SPASM
  7. NITROGLYCERINE SANDOZ SPRAY 0,4 MG/DOSIS, SPRAY VOOR SUBLINGUAAL GEBRU [Suspect]
     Active Substance: NITROGLYCERIN
     Indication: ARTERIAL SPASM
     Dosage: UNK
     Route: 065

REACTIONS (1)
  - Drug ineffective [Unknown]
